FAERS Safety Report 4992936-8 (Version None)
Quarter: 2006Q2

REPORT INFORMATION
  Report Type: 
  Country: None (occurrence: None)
  Receive Date: 20060504
  Receipt Date: 20060126
  Transmission Date: 20061013
  Serious: Yes (Hospitalization)
  Sender: FDA-Public Use
  Company Number: US-MERCK-0601USA03596

PATIENT
  Age: 58 Year
  Sex: Male
  Weight: 86 kg

DRUGS (2)
  1. VIOXX [Suspect]
     Route: 048
     Dates: start: 20001101, end: 20010501
  2. NEURONTIN [Concomitant]
     Route: 065

REACTIONS (6)
  - ACUTE MYOCARDIAL INFARCTION [None]
  - BASAL CELL CARCINOMA [None]
  - CORONARY ARTERY DISEASE [None]
  - MIGRAINE WITHOUT AURA [None]
  - SINUS DISORDER [None]
  - SLEEP APNOEA SYNDROME [None]
